FAERS Safety Report 9643379 (Version 1)
Quarter: 2013Q4

REPORT INFORMATION
  Report Type: Spontaneous
  Country: US (occurrence: US)
  Receive Date: 20131024
  Receipt Date: 20131024
  Transmission Date: 20140711
  Serious: Yes (Other)
  Sender: FDA-Public Use
  Company Number: US-PFIZER INC-2013300358

PATIENT
  Age: 49 Year
  Sex: Male

DRUGS (4)
  1. FOSPHENYTOIN SODIUM [Suspect]
     Indication: STATUS EPILEPTICUS
     Dosage: 18 PE/ KG
     Route: 042
  2. CARVEDILOL [Suspect]
     Dosage: UNK
  3. AMLODIPINE BESILATE [Suspect]
     Dosage: UNK
  4. LORAZEPAM [Concomitant]
     Indication: CONVULSION
     Dosage: 2 MG, UNK

REACTIONS (3)
  - Cardiogenic shock [Unknown]
  - Bradycardia [Recovering/Resolving]
  - Hypotension [Unknown]
